FAERS Safety Report 10524888 (Version 3)
Quarter: 2014Q4

REPORT INFORMATION
  Report Type: Spontaneous
  Country: FR (occurrence: FR)
  Receive Date: 20141017
  Receipt Date: 20141030
  Transmission Date: 20150528
  Serious: Yes (Hospitalization, Other)
  Sender: FDA-Public Use
  Company Number: FR-BAYER-2014-148449

PATIENT
  Age: 42 Year
  Sex: Female
  Weight: 58 kg

DRUGS (1)
  1. MIRENA [Suspect]
     Active Substance: LEVONORGESTREL
     Dosage: 20 MCG/24HR, CONT
     Route: 015
     Dates: start: 20130718

REACTIONS (8)
  - Abdominal pain [None]
  - Haemorrhagic ovarian cyst [None]
  - Drug ineffective [None]
  - Pelvic pain [None]
  - Ectopic pregnancy [Recovering/Resolving]
  - Peritoneal haemorrhage [None]
  - Amenorrhoea [Recovering/Resolving]
  - Malaise [None]

NARRATIVE: CASE EVENT DATE: 20140915
